FAERS Safety Report 6814845-1 (Version None)
Quarter: 2010Q3

REPORT INFORMATION
  Report Type: 
  Country: None (occurrence: None)
  Receive Date: 20100702
  Receipt Date: 20100623
  Transmission Date: 20110219
  Serious: Yes (Hospitalization)
  Sender: FDA-Public Use
  Company Number: B0659122A

PATIENT
  Sex: Female

DRUGS (4)
  1. LAMICTAL [Suspect]
     Indication: COMPLEX PARTIAL SEIZURES
     Dosage: 2MG PER DAY
     Route: 048
     Dates: start: 20090316, end: 20090326
  2. DEPAKENE [Concomitant]
     Indication: COMPLEX PARTIAL SEIZURES
     Dosage: 400MG PER DAY
     Route: 048
  3. TOPIRAMATE [Concomitant]
     Indication: COMPLEX PARTIAL SEIZURES
     Dosage: 125MG PER DAY
     Route: 048
  4. DIAPP [Concomitant]
     Indication: COMPLEX PARTIAL SEIZURES
     Route: 054

REACTIONS (2)
  - INFLUENZA [None]
  - STATUS EPILEPTICUS [None]
